FAERS Safety Report 5624305-1 (Version None)
Quarter: 2008Q1

REPORT INFORMATION
  Report Type: 
  Country: None (occurrence: None)
  Receive Date: 20080213
  Receipt Date: 20080201
  Transmission Date: 20080703
  Serious: Yes (Death)
  Sender: FDA-Public Use
  Company Number: US-ELI_LILLY_AND_COMPANY-US200802000153

PATIENT
  Sex: Female

DRUGS (4)
  1. XIGRIS [Suspect]
     Dates: start: 20071111, end: 20071112
  2. DOPAMINE HCL [Concomitant]
  3. DOBUTAMINE [Concomitant]
  4. LEVOPHED [Concomitant]

REACTIONS (1)
  - DEATH [None]
